FAERS Safety Report 9157535 (Version 1)
Quarter: 2013Q1

REPORT INFORMATION
  Report Type: Report from Study
  Country: DE (occurrence: DE)
  Receive Date: 20130312
  Receipt Date: 20130312
  Transmission Date: 20140127
  Serious: Yes (Death, Other)
  Sender: FDA-Public Use
  Company Number: DE-ASTELLAS-2013US002609

PATIENT
  Sex: Male

DRUGS (5)
  1. ERLOTINIB TABLET [Suspect]
     Indication: NON-SMALL CELL LUNG CANCER
     Dosage: 150 MG, UID/QD
     Route: 048
     Dates: start: 200607, end: 200607
  2. ERLOTINIB TABLET [Suspect]
     Dosage: 150 MG, QOD
     Route: 048
     Dates: start: 200607, end: 200609
  3. ERLOTINIB TABLET [Suspect]
     Dosage: 75 MG, QOD
     Route: 048
     Dates: start: 200607, end: 200609
  4. ERLOTINIB TABLET [Suspect]
     Dosage: 50 MG, UID/QD
     Route: 048
     Dates: start: 200609, end: 200703
  5. ERLOTINIB TABLET [Suspect]
     Dosage: 33 MG, UID/QD
     Route: 048
     Dates: start: 200703, end: 200711

REACTIONS (6)
  - Death [Fatal]
  - Malignant neoplasm progression [Unknown]
  - Metastases to central nervous system [Unknown]
  - Rash [Unknown]
  - Dry skin [Unknown]
  - Conjunctivitis [Unknown]
